FAERS Safety Report 7564482-9 (Version None)
Quarter: 2011Q2

REPORT INFORMATION
  Report Type: 
  Country: None (occurrence: None)
  Receive Date: 20110622
  Receipt Date: 20110617
  Transmission Date: 20111010
  Serious: Yes (Death, Hospitalization)
  Sender: FDA-Public Use
  Company Number: PHHO2011CA09245

PATIENT
  Sex: Male
  Weight: 76 kg

DRUGS (4)
  1. AFINITOR [Suspect]
     Indication: RENAL CELL CARCINOMA
     Dosage: 10 MG, DAILY
     Route: 048
     Dates: start: 20110311, end: 20110525
  2. NOVOHYDRAZIDE [Concomitant]
     Indication: HYPERTENSION
     Dosage: UNK
     Dates: start: 20000101, end: 20110517
  3. TYLENOL W/ CODEINE NO. 3 [Concomitant]
     Indication: ABDOMINAL PAIN UPPER
     Dosage: UNK
  4. SLOW-K [Concomitant]
     Indication: HYPOKALAEMIA
     Dosage: UNK

REACTIONS (5)
  - PULMONARY EMBOLISM [None]
  - RESPIRATORY DISTRESS [None]
  - PNEUMONITIS [None]
  - PNEUMONIA [None]
  - NEOPLASM MALIGNANT [None]
